FAERS Safety Report 8346594-5 (Version None)
Quarter: 2012Q2

REPORT INFORMATION
  Report Type: 
  Country: None (occurrence: None)
  Receive Date: 20120509
  Receipt Date: 20120503
  Transmission Date: 20120825
  Serious: Yes (Hospitalization, Other)
  Sender: FDA-Public Use
  Company Number: PHHY2012CA033867

PATIENT
  Sex: Male

DRUGS (1)
  1. DESFERAL [Suspect]
     Indication: HEREDITARY HAEMOCHROMATOSIS

REACTIONS (3)
  - PERITONITIS [None]
  - DEAFNESS [None]
  - PULMONARY TOXICITY [None]
